FAERS Safety Report 16454515 (Version 5)
Quarter: 2020Q1

REPORT INFORMATION
  Report Type: Report from Study
  Country: US (occurrence: US)
  Receive Date: 20190619
  Receipt Date: 20200129
  Transmission Date: 20200409
  Serious: Yes (Other)
  Sender: FDA-Public Use
  Company Number: PHEH2019US025462

PATIENT
  Sex: Female

DRUGS (1)
  1. ENTRESTO [Suspect]
     Active Substance: SACUBITRIL\VALSARTAN
     Indication: PRODUCT USED FOR UNKNOWN INDICATION
     Dosage: UNK
     Route: 065

REACTIONS (11)
  - Cardiac disorder [Unknown]
  - Eye disorder [Unknown]
  - Upper respiratory tract congestion [Unknown]
  - Anxiety [Unknown]
  - Gastrointestinal disorder [Unknown]
  - Cardiac failure [Unknown]
  - Lung disorder [Unknown]
  - Bronchitis [Unknown]
  - Fatigue [Unknown]
  - Asthma [Unknown]
  - Cough [Unknown]
